FAERS Safety Report 17974942 (Version 2)
Quarter: 2021Q2

REPORT INFORMATION
  Report Type: Spontaneous
  Country: NO (occurrence: NO)
  Receive Date: 20200702
  Receipt Date: 20210408
  Transmission Date: 20210717
  Serious: Yes (Hospitalization, Other)
  Sender: FDA-Public Use
  Company Number: NO-JNJFOC-20200629911

PATIENT
  Sex: Female

DRUGS (6)
  1. XEPLION [Suspect]
     Active Substance: PALIPERIDONE PALMITATE
     Indication: DEPRESSION
     Route: 030
     Dates: start: 20130820
  2. SEROQUEL [Suspect]
     Active Substance: QUETIAPINE FUMARATE
     Indication: HALLUCINATION
     Dosage: FOR 3?4 DAYS
     Route: 065
  3. SEROQUEL [Suspect]
     Active Substance: QUETIAPINE FUMARATE
     Indication: DELUSION
  4. SEROQUEL [Suspect]
     Active Substance: QUETIAPINE FUMARATE
     Indication: ANXIETY
  5. XEPLION [Suspect]
     Active Substance: PALIPERIDONE PALMITATE
  6. XEPLION [Suspect]
     Active Substance: PALIPERIDONE PALMITATE
     Indication: PSYCHOTIC DISORDER
     Route: 030
     Dates: start: 20130827, end: 20130827

REACTIONS (16)
  - Dyskinesia [Unknown]
  - Decreased appetite [Unknown]
  - Neuroleptic malignant syndrome [Unknown]
  - Incorrect dose administered [Unknown]
  - Cognitive disorder [Unknown]
  - Learning disorder [Unknown]
  - Nausea [Unknown]
  - Diarrhoea [Unknown]
  - Off label use [Unknown]
  - Nervous system disorder [Unknown]
  - Memory impairment [Unknown]
  - Respiratory disorder [Unknown]
  - Neuralgia [Unknown]
  - Vomiting [Unknown]
  - Constipation [Unknown]
  - Perineurial cyst [Unknown]

NARRATIVE: CASE EVENT DATE: 2013
